FAERS Safety Report 4917944-4 (Version None)
Quarter: 2006Q1

REPORT INFORMATION
  Report Type: 
  Country: None (occurrence: None)
  Receive Date: 20060221
  Receipt Date: 20051013
  Transmission Date: 20060701
  Serious: Yes (Hospitalization, Other)
  Sender: FDA-Public Use
  Company Number: US-MERCK-0510USA07024

PATIENT
  Age: 63 Year
  Sex: Male
  Weight: 116 kg

DRUGS (4)
  1. VIOXX [Suspect]
     Indication: RHEUMATOID ARTHRITIS
     Route: 048
     Dates: start: 19991123, end: 20040728
  2. VIOXX [Suspect]
     Indication: PAIN
     Route: 048
     Dates: start: 19991123, end: 20040728
  3. LORAZEPAM [Concomitant]
     Route: 065
  4. DIOVAN [Concomitant]
     Route: 065

REACTIONS (6)
  - BLOOD CHOLESTEROL INCREASED [None]
  - CEREBROVASCULAR ACCIDENT [None]
  - CHEST PAIN [None]
  - DIZZINESS [None]
  - HYPERTENSION [None]
  - MYOCARDIAL INFARCTION [None]
